FAERS Safety Report 6424272-7 (Version None)
Quarter: 2009Q4

REPORT INFORMATION
  Report Type: 
  Country: None (occurrence: None)
  Receive Date: 20091102
  Receipt Date: 20091020
  Transmission Date: 20100525
  Serious: Yes (Other)
  Sender: FDA-Public Use
  Company Number: DE-WATSON-2009-08978

PATIENT
  Age: 38 Year
  Sex: Female

DRUGS (2)
  1. CORTISONE (WATSON LABORATORIES) [Suspect]
     Indication: PNEUMONIA CRYPTOCOCCAL
     Dosage: 40 MG, DAILY
     Route: 048
     Dates: start: 20060501
  2. TACROLIMUS [Suspect]
     Indication: RENAL TRANSPLANT
     Dosage: UNK
     Dates: start: 19910101, end: 20060520

REACTIONS (2)
  - ANTIPHOSPHOLIPID ANTIBODIES POSITIVE [None]
  - INTRACARDIAC THROMBUS [None]
